FAERS Safety Report 5250299-7 (Version None)
Quarter: 2007Q1

REPORT INFORMATION
  Report Type: 
  Country: None (occurrence: None)
  Receive Date: 20070228
  Receipt Date: 20060426
  Transmission Date: 20070707
  Serious: No
  Sender: FDA-Public Use
  Company Number: US-GLAXOSMITHKLINE-A0598416A

PATIENT
  Age: 36 Year
  Sex: Male
  Weight: 81.8 kg

DRUGS (2)
  1. LAMICTAL [Suspect]
     Indication: DRUG USE FOR UNKNOWN INDICATION
     Dosage: 50MG TWICE PER DAY
     Route: 048
     Dates: start: 20060207, end: 20060201
  2. CLONAZEPAM [Concomitant]

REACTIONS (3)
  - PAIN [None]
  - RASH [None]
  - SKIN DISORDER [None]
